FAERS Safety Report 10203116 (Version 1)
Quarter: 2014Q2

REPORT INFORMATION
  Report Type: Other
  Country: JP (occurrence: JP)
  Receive Date: 20140529
  Receipt Date: 20140529
  Transmission Date: 20141212
  Serious: Yes (Hospitalization)
  Sender: FDA-Public Use
  Company Number: JP-LUPIN PHARMACEUTICALS INC.-2014-01025

PATIENT
  Age: 54 Year
  Sex: Male

DRUGS (6)
  1. LAMOTRIGINE [Suspect]
     Indication: PRODUCT USED FOR UNKNOWN INDICATION
     Route: 065
  2. LAMOTRIGINE [Suspect]
     Dosage: INCREASED BY 50MG PER WEEK
     Route: 065
  3. LAMOTRIGINE [Suspect]
     Route: 065
  4. SERTRALINE [Suspect]
     Indication: DEPRESSION
     Route: 065
  5. ARIPIPRAZOLE [Suspect]
     Indication: PRODUCT USED FOR UNKNOWN INDICATION
     Route: 065
  6. LITHIUM [Suspect]
     Indication: PRODUCT USED FOR UNKNOWN INDICATION
     Route: 065

REACTIONS (1)
  - Neuroleptic malignant syndrome [Recovered/Resolved]
